FAERS Safety Report 17852361 (Version 1)
Quarter: 2020Q2

REPORT INFORMATION
  Report Type: Spontaneous
  Country: CN (occurrence: CN)
  Receive Date: 20200602
  Receipt Date: 20200602
  Transmission Date: 20200714
  Serious: Yes (Hospitalization, Other)
  Sender: FDA-Public Use
  Company Number: CN-PFIZER INC-2020213229

PATIENT
  Age: 27 Year
  Sex: Female
  Weight: 53 kg

DRUGS (12)
  1. SODIUM CHLORIDE. [Concomitant]
     Active Substance: SODIUM CHLORIDE
     Indication: ACUTE LYMPHOCYTIC LEUKAEMIA
     Dosage: 100 ML, CYCLIC (ONCE EVERY FIVE DAYS)
     Route: 041
     Dates: start: 20200416, end: 20200420
  2. SODIUM CHLORIDE. [Concomitant]
     Active Substance: SODIUM CHLORIDE
     Dosage: 500 ML, CYCLIC (ONCE EVERY FOUR DAYS)
     Route: 041
     Dates: start: 20200430, end: 20200503
  3. SODIUM CHLORIDE. [Concomitant]
     Active Substance: SODIUM CHLORIDE
     Dosage: 500 ML, CYCLIC (ONCE EVERY 14 DAYS)
     Route: 041
     Dates: start: 20200416, end: 20200430
  4. VINCRISTINE [Suspect]
     Active Substance: VINCRISTINE
     Indication: ACUTE LYMPHOCYTIC LEUKAEMIA
     Dosage: 2 MG, WEEKLY
     Route: 042
     Dates: start: 20200416, end: 20200430
  5. DEXAMETHASONE SODIUM PHOSPHATE. [Concomitant]
     Active Substance: DEXAMETHASONE SODIUM PHOSPHATE
     Indication: ACUTE LYMPHOCYTIC LEUKAEMIA
     Dosage: 40 MG, CYCLIC (ONCE EVERYFOUR DAYS)
     Route: 041
     Dates: start: 20200416, end: 20200419
  6. DEXAMETHASONE SODIUM PHOSPHATE. [Concomitant]
     Active Substance: DEXAMETHASONE SODIUM PHOSPHATE
     Dosage: 40 MG, CYCLIC (ONCE EVERYFOUR DAYS)
     Route: 041
     Dates: start: 20200430, end: 20200503
  7. SODIUM CHLORIDE. [Concomitant]
     Active Substance: SODIUM CHLORIDE
     Dosage: 500 ML, CYCLIC (ONCE EVERY 14 DAYS)
     Route: 041
     Dates: start: 20200416, end: 20200430
  8. RITUXAN [Concomitant]
     Active Substance: RITUXIMAB
     Indication: ACUTE LYMPHOCYTIC LEUKAEMIA
     Dosage: 600 MG, CYCLIC (ONCE EVERY 14 DAYS)
     Route: 041
     Dates: start: 20200416, end: 20200430
  9. SODIUM CHLORIDE. [Concomitant]
     Active Substance: SODIUM CHLORIDE
     Dosage: 20 ML, WEEKLY
     Route: 042
     Dates: start: 20200416, end: 20200430
  10. SODIUM CHLORIDE. [Concomitant]
     Active Substance: SODIUM CHLORIDE
     Indication: VEHICLE SOLUTION USE
     Dosage: 500 ML, CYCLIC (ONCE EVERY FOUR DAYS)
     Route: 041
     Dates: start: 20200416, end: 20200419
  11. METHOTREXATE. [Suspect]
     Active Substance: METHOTREXATE
     Indication: ACUTE LYMPHOCYTIC LEUKAEMIA
     Dosage: 300 MG, CYCLIC (ONCE EVERY FIVE DAYS)
     Route: 041
     Dates: start: 20200416, end: 20200420
  12. PEGASPARGASE [Suspect]
     Active Substance: PEGASPARGASE
     Indication: ACUTE LYMPHOCYTIC LEUKAEMIA
     Dosage: 3750 IU, CYCLIC (ONCE EVERY 15 DAYS)
     Route: 030
     Dates: start: 20200417, end: 20200501

REACTIONS (4)
  - Ileus paralytic [Recovering/Resolving]
  - Tenderness [Recovering/Resolving]
  - Malaise [Unknown]
  - Muscle tightness [Recovering/Resolving]

NARRATIVE: CASE EVENT DATE: 20200508
